FAERS Safety Report 15791096 (Version 1)
Quarter: 2019Q1

REPORT INFORMATION
  Report Type: Spontaneous
  Country: US (occurrence: US)
  Receive Date: 20190104
  Receipt Date: 20190104
  Transmission Date: 20190417
  Serious: Yes (Other)
  Sender: FDA-Public Use
  Company Number: US-JAZZ-2018-US-017216

PATIENT
  Sex: Male
  Weight: 81.63 kg

DRUGS (4)
  1. PRIALT [Suspect]
     Active Substance: ZICONOTIDE ACETATE
     Indication: MUSCLE SPASTICITY
     Dosage: 0.02 ?G, QH
     Route: 037
  2. DILAUDID [Suspect]
     Active Substance: HYDROMORPHONE HYDROCHLORIDE
     Indication: MUSCLE SPASTICITY
     Dosage: 0.02 ?G, UNK
     Route: 037
  3. BUPIVACAINE. [Suspect]
     Active Substance: BUPIVACAINE
     Indication: MUSCLE SPASTICITY
     Dosage: 0.54 ?G, QH
     Route: 037
  4. BACLOFEN. [Suspect]
     Active Substance: BACLOFEN
     Indication: MUSCLE SPASTICITY
     Dosage: 27.4 ?G, QH
     Route: 037

REACTIONS (5)
  - Catheter site infection [Not Recovered/Not Resolved]
  - Skin ulcer [Unknown]
  - Device issue [Unknown]
  - Spinal operation [Unknown]
  - Skin induration [Unknown]

NARRATIVE: CASE EVENT DATE: 2015
